FAERS Safety Report 6990311-8 (Version None)
Quarter: 2010Q3

REPORT INFORMATION
  Report Type: 
  Country: None (occurrence: None)
  Receive Date: 20100916
  Receipt Date: 20100531
  Transmission Date: 20110219
  Serious: Yes (Other)
  Sender: FDA-Public Use
  Company Number: NO-PFIZER INC-2010047462

PATIENT
  Age: 69 Year
  Sex: Female

DRUGS (4)
  1. LYRICA [Suspect]
     Indication: PAIN
     Dosage: 75 MG, 1X/DAY
     Dates: start: 20061001
  2. LYRICA [Suspect]
     Dosage: 150 MG, 2X/DAY
  3. LYRICA [Suspect]
     Dosage: 150 MG, 1X/DAY
     Dates: end: 20100301
  4. NEURONTIN [Suspect]
     Dosage: UNK

REACTIONS (7)
  - ANXIETY [None]
  - DECREASED APPETITE [None]
  - DRUG INEFFECTIVE [None]
  - MALAISE [None]
  - PALPITATIONS [None]
  - RESTLESSNESS [None]
  - WITHDRAWAL SYNDROME [None]
